FAERS Safety Report 7213907-7 (Version None)
Quarter: 2011Q1

REPORT INFORMATION
  Report Type: 
  Country: None (occurrence: None)
  Receive Date: 20110106
  Receipt Date: 20101223
  Transmission Date: 20110831
  Serious: Yes (Life-Threatening, Hospitalization)
  Sender: FDA-Public Use
  Company Number: FR-GENENTECH-311140

PATIENT
  Sex: Male
  Weight: 73 kg

DRUGS (22)
  1. RITUXIMAB [Suspect]
     Dosage: 656 MG, 2/MONTH
     Route: 041
     Dates: start: 20100629
  2. CANCIDAS [Concomitant]
     Indication: PRODUCT USED FOR UNKNOWN INDICATION
     Dosage: UNK
     Dates: start: 20100511, end: 20100516
  3. CEFTAZIDIME (FORTAZ) [Concomitant]
     Indication: PRODUCT USED FOR UNKNOWN INDICATION
     Dosage: UNK
     Dates: start: 20100522, end: 20100527
  4. MELPHALAN [Concomitant]
     Indication: PRODUCT USED FOR UNKNOWN INDICATION
     Dosage: UNK
     Dates: start: 20100304, end: 20100304
  5. MELPHALAN [Suspect]
     Indication: MANTLE CELL LYMPHOMA
     Dosage: 285 MG, QD
     Route: 065
     Dates: start: 20100504
  6. DEXAMETHASONE [Concomitant]
     Indication: PRODUCT USED FOR UNKNOWN INDICATION
     Dosage: UNK
     Dates: start: 20100112
  7. NEXIUM [Concomitant]
     Indication: PRODUCT USED FOR UNKNOWN INDICATION
     Dosage: UNK
     Dates: start: 20100202
  8. CYTARABINE [Suspect]
     Indication: MANTLE CELL LYMPHOMA
     Dosage: 756 MG, QD
     Route: 065
     Dates: start: 20100430, end: 20100503
  9. XATRAL [Concomitant]
     Indication: PRODUCT USED FOR UNKNOWN INDICATION
     Dosage: UNK
     Dates: start: 20100101
  10. EPREX [Concomitant]
     Indication: PRODUCT USED FOR UNKNOWN INDICATION
     Dosage: UNK
     Dates: start: 20100616, end: 20101118
  11. RITUXIMAB [Suspect]
     Indication: MANTLE CELL LYMPHOMA
     Dosage: UNK MG, QD
     Route: 041
     Dates: start: 20100115
  12. POTASSIUM CHLORIDE [Concomitant]
     Indication: HYPOKALAEMIA
     Dosage: UNK
     Route: 048
     Dates: start: 20101001
  13. STILNOX [Concomitant]
     Indication: PRODUCT USED FOR UNKNOWN INDICATION
     Dosage: UNK
     Dates: start: 20100111
  14. CISPLATIN [Concomitant]
     Indication: PRODUCT USED FOR UNKNOWN INDICATION
     Dosage: UNK
     Dates: start: 20100112
  15. BACTRIM [Concomitant]
     Indication: PRODUCT USED FOR UNKNOWN INDICATION
     Dosage: UNK
     Dates: start: 20100517, end: 20100527
  16. ZOVIRAX [Concomitant]
     Indication: PRODUCT USED FOR UNKNOWN INDICATION
     Dosage: UNK
     Dates: start: 20100519
  17. IMIPENEM AND CILASTATIN [Concomitant]
     Indication: PRODUCT USED FOR UNKNOWN INDICATION
     Dosage: UNK
     Dates: start: 20100514, end: 20100527
  18. RITUXIMAB [Suspect]
     Dosage: 945 MG, QD
     Route: 041
     Dates: start: 20100428
  19. VFEND [Concomitant]
     Indication: PRODUCT USED FOR UNKNOWN INDICATION
     Dosage: UNK
     Dates: start: 20100518, end: 20100524
  20. LEVETIRACETAM [Concomitant]
     Indication: PRODUCT USED FOR UNKNOWN INDICATION
  21. CARMUSTINE [Suspect]
     Indication: MANTLE CELL LYMPHOMA
     Dosage: 567 MG, QD
     Route: 065
     Dates: start: 20100429
  22. ETOPOSIDE [Suspect]
     Indication: MANTLE CELL LYMPHOMA
     Dosage: 378 MG, QD
     Route: 065
     Dates: start: 20100430, end: 20100503

REACTIONS (6)
  - MUCOSAL INFLAMMATION [None]
  - THROMBOCYTOPENIA [None]
  - STAPHYLOCOCCAL SEPSIS [None]
  - TOXIC ENCEPHALOPATHY [None]
  - ENCEPHALITIS HERPES [None]
  - FEBRILE NEUTROPENIA [None]
